FAERS Safety Report 22026318 (Version 5)
Quarter: 2023Q2

REPORT INFORMATION
  Report Type: Other
  Country: US (occurrence: None)
  Receive Date: 20230223
  Receipt Date: 20230410
  Transmission Date: 20230721
  Serious: Yes (Hospitalization)
  Sender: FDA-Public Use
  Company Number: US-ROCHE-3290642

PATIENT
  Age: 52 Year
  Sex: Female

DRUGS (7)
  1. XOLAIR [Suspect]
     Active Substance: OMALIZUMAB
     Indication: Asthma
     Route: 058
     Dates: start: 2009
  2. XOLAIR [Suspect]
     Active Substance: OMALIZUMAB
  3. XOLAIR [Suspect]
     Active Substance: OMALIZUMAB
     Indication: Asthma
     Route: 058
  4. XOLAIR [Suspect]
     Active Substance: OMALIZUMAB
  5. EPIPEN [Concomitant]
     Active Substance: EPINEPHRINE
  6. CLARITIN [Concomitant]
     Active Substance: LORATADINE
  7. PREDNISONE [Concomitant]
     Active Substance: PREDNISONE

REACTIONS (10)
  - Anaphylactic reaction [Recovered/Resolved]
  - COVID-19 [Recovered/Resolved]
  - Asthma [Unknown]
  - Injection site pain [Unknown]
  - Fatigue [Unknown]
  - Dyspnoea [Unknown]
  - Urticaria [Unknown]
  - Dizziness [Unknown]
  - Lip swelling [Unknown]
  - Wheezing [Unknown]

NARRATIVE: CASE EVENT DATE: 20220801
